APPROVED DRUG PRODUCT: PROAIR RESPICLICK
Active Ingredient: ALBUTEROL SULFATE
Strength: EQ 0.09MG BASE/INH
Dosage Form/Route: POWDER, METERED;INHALATION
Application: N205636 | Product #001
Applicant: TEVA BRANDED PHARMACEUTICAL PRODUCTS R AND D LLC
Approved: Mar 31, 2015 | RLD: Yes | RS: Yes | Type: RX